FAERS Safety Report 5567369-6 (Version None)
Quarter: 2007Q4

REPORT INFORMATION
  Report Type: 
  Country: None (occurrence: None)
  Receive Date: 20071214
  Receipt Date: 20071129
  Transmission Date: 20080405
  Serious: Yes (Hospitalization)
  Sender: FDA-Public Use
  Company Number: 2007PV000044

PATIENT
  Age: 68 Year
  Sex: Male

DRUGS (3)
  1. DEPOCYT [Suspect]
     Indication: CENTRAL NERVOUS SYSTEM LEUKAEMIA
     Dosage: 50 MG; INTH
     Route: 037
     Dates: start: 20051201, end: 20060501
  2. DEXAMETHASONE TAB [Concomitant]
  3. CYTARABINE [Concomitant]

REACTIONS (3)
  - MUSCLE INJURY [None]
  - MYOSITIS [None]
  - POLYNEUROPATHY [None]
